FAERS Safety Report 10650036 (Version 1)
Quarter: 2014Q4

REPORT INFORMATION
  Report Type: Spontaneous
  Country: FR (occurrence: FR)
  Receive Date: 20141212
  Receipt Date: 20141212
  Transmission Date: 20150529
  Serious: Yes (Death, Hospitalization)
  Sender: FDA-Public Use
  Company Number: FR-PFIZER INC-2014340416

PATIENT
  Age: 54 Year
  Sex: Male

DRUGS (11)
  1. METFORMIN HCL [Suspect]
     Active Substance: METFORMIN HYDROCHLORIDE
     Dosage: 1000 MG, 3X/DAY
     Route: 048
     Dates: end: 20141110
  2. DUOPLAVIN [Suspect]
     Active Substance: ASPIRIN\CLOPIDOGREL
     Dosage: 1 UNIT, DAILY
     Route: 048
     Dates: end: 20141110
  3. CORDARONE [Suspect]
     Active Substance: AMIODARONE HYDROCHLORIDE
     Dosage: UNK
     Route: 048
     Dates: end: 20141110
  4. APROVEL [Suspect]
     Active Substance: IRBESARTAN
     Dosage: UNK
     Route: 048
     Dates: end: 20141110
  5. PRADAXA [Suspect]
     Active Substance: DABIGATRAN ETEXILATE MESYLATE
     Dosage: 110 MG, DAILY
     Route: 048
     Dates: end: 20141110
  6. TEMERIT [Suspect]
     Active Substance: NEBIVOLOL
     Dosage: UNK
     Route: 048
     Dates: end: 20141110
  7. NICORANDIL [Suspect]
     Active Substance: NICORANDIL
     Dosage: UNK
     Route: 048
     Dates: end: 20141110
  8. AMAREL [Suspect]
     Active Substance: GLIMEPIRIDE
     Dosage: UNK
     Route: 048
     Dates: end: 20141110
  9. ATORVASTATIN CALCIUM. [Suspect]
     Active Substance: ATORVASTATIN CALCIUM
     Dosage: UNK
     Route: 048
     Dates: end: 20141110
  10. PANTOPRAZOLE [Suspect]
     Active Substance: PANTOPRAZOLE SODIUM
     Dosage: UNK
     Route: 048
     Dates: end: 20141110
  11. JANUVIA [Suspect]
     Active Substance: SITAGLIPTIN PHOSPHATE
     Dosage: UNK
     Route: 048
     Dates: end: 20141110

REACTIONS (4)
  - Gastrointestinal disorder [Fatal]
  - Lactic acidosis [Fatal]
  - Multi-organ failure [Fatal]
  - Renal failure [Fatal]

NARRATIVE: CASE EVENT DATE: 20141108
